FAERS Safety Report 8257325-1 (Version None)
Quarter: 2012Q1

REPORT INFORMATION
  Report Type: 
  Country: None (occurrence: None)
  Receive Date: 20120330
  Receipt Date: 20120320
  Transmission Date: 20120608
  Serious: Yes (Other)
  Sender: FDA-Public Use
  Company Number: IMP_05804_2012

PATIENT
  Age: 57 Year
  Sex: Male

DRUGS (2)
  1. TESTOSTERONE ENANTHATE [Concomitant]
  2. CABERGOLINE [Suspect]
     Indication: PROLACTINOMA
     Dosage: (3 MG 1X/WEEK), (0.25 MG 1X/WEEK)

REACTIONS (4)
  - VISUAL FIELD DEFECT [None]
  - CONDITION AGGRAVATED [None]
  - VISUAL PATHWAY DISORDER [None]
  - VISUAL ACUITY REDUCED [None]
